FAERS Safety Report 13702108 (Version 1)
Quarter: 2017Q2

REPORT INFORMATION
  Report Type: Spontaneous
  Country: US (occurrence: US)
  Receive Date: 20170629
  Receipt Date: 20170629
  Transmission Date: 20170830
  Serious: No
  Sender: FDA-Public Use
  Company Number: US-JNJFOC-20170402703

PATIENT
  Age: 28 Year
  Sex: Female
  Weight: 56.7 kg

DRUGS (2)
  1. NIZORAL [Suspect]
     Active Substance: KETOCONAZOLE
     Indication: DANDRUFF
     Dosage: 2-3 TIMES A WEEK
     Route: 061
     Dates: start: 20170306
  2. NIZORAL [Suspect]
     Active Substance: KETOCONAZOLE
     Route: 061

REACTIONS (1)
  - Drug ineffective [Unknown]
